FAERS Safety Report 12695227 (Version 2)
Quarter: 2017Q1

REPORT INFORMATION
  Report Type: Spontaneous
  Country: US (occurrence: US)
  Receive Date: 20160829
  Receipt Date: 20170110
  Transmission Date: 20170428
  Serious: No
  Sender: FDA-Public Use
  Company Number: US-BAYER-2016-165299

PATIENT
  Age: 77 Year
  Sex: Male

DRUGS (2)
  1. BETASERON [Suspect]
     Active Substance: INTERFERON BETA-1B
     Indication: MULTIPLE SCLEROSIS
     Dosage: 0.25 MG, QOD
     Route: 058
  2. BETASERON [Suspect]
     Active Substance: INTERFERON BETA-1B
     Indication: MULTIPLE SCLEROSIS
     Dosage: 0.25 MG, EVERY FRIDAY AND MONDAY
     Route: 058
     Dates: start: 20161123

REACTIONS (6)
  - Product use issue [None]
  - Blood test abnormal [None]
  - Vomiting [None]
  - Chills [None]
  - Abdominal discomfort [None]
  - Influenza like illness [None]

NARRATIVE: CASE EVENT DATE: 201608
